FAERS Safety Report 6194673-3 (Version None)
Quarter: 2009Q2

REPORT INFORMATION
  Report Type: 
  Country: None (occurrence: None)
  Receive Date: 20090515
  Receipt Date: 20090501
  Transmission Date: 20091009
  Serious: Yes (Other)
  Sender: FDA-Public Use
  Company Number: A-JP2007-18396

PATIENT
  Age: 58 Year
  Sex: Female
  Weight: 43 kg

DRUGS (10)
  1. TRACLEER [Suspect]
     Indication: PULMONARY HYPERTENSION
     Dosage: 62.5 MG, BID, ORAL
     Route: 048
     Dates: start: 20060719
  2. RANITIDINE [Suspect]
  3. METHOTREXATE [Suspect]
  4. BERAPROST SODIUM (BERAPROST SODIUM) [Concomitant]
  5. FUROSEMIDE [Concomitant]
  6. SPIRONOLACTONE [Concomitant]
  7. LANSOPRAZOLE [Concomitant]
  8. OXYGEN (OXYGEN) [Concomitant]
  9. NEOPHAGEN (GLYCYRRHIZINATE POTASSIUM) [Concomitant]
  10. TADALAFIL (TADALAFIL) [Concomitant]

REACTIONS (4)
  - CARDIAC FAILURE [None]
  - CONDITION AGGRAVATED [None]
  - NASOPHARYNGITIS [None]
  - PANCYTOPENIA [None]
